FAERS Safety Report 6400846-4 (Version None)
Quarter: 2009Q4

REPORT INFORMATION
  Report Type: 
  Country: None (occurrence: None)
  Receive Date: 20091014
  Receipt Date: 20081009
  Transmission Date: 20100525
  Serious: Yes (Life-Threatening, Other)
  Sender: FDA-Public Use
  Company Number: CA-GILEAD-2009-0024750

PATIENT
  Age: 31 Year
  Sex: Female

DRUGS (3)
  1. VIREAD [Suspect]
     Indication: HEPATITIS B
  2. PREDNISOLONE [Concomitant]
  3. IMURAN [Concomitant]

REACTIONS (1)
  - NEUTROPENIA [None]
